FAERS Safety Report 5215474-6 (Version None)
Quarter: 2007Q1

REPORT INFORMATION
  Report Type: 
  Country: None (occurrence: None)
  Receive Date: 20070119
  Receipt Date: 20070119
  Transmission Date: 20070707
  Serious: No
  Sender: FDA-Public Use
  Company Number: None

PATIENT
  Age: 62 Year
  Sex: Female
  Weight: 77.1115 kg

DRUGS (1)
  1. ZICAM NO DRIP [Suspect]
     Indication: NASOPHARYNGITIS
     Dosage: NOT ON LABEL     NASAL    (USED ONE TIME)
     Route: 045
     Dates: start: 20070116, end: 20070116

REACTIONS (2)
  - AGEUSIA [None]
  - ANOSMIA [None]
